FAERS Safety Report 6194629-0 (Version None)
Quarter: 2009Q2

REPORT INFORMATION
  Report Type: 
  Country: None (occurrence: None)
  Receive Date: 20090515
  Receipt Date: 20090515
  Transmission Date: 20091009
  Serious: Yes (Death)
  Sender: FDA-Public Use
  Company Number: None

PATIENT
  Sex: Male
  Weight: 98 kg

DRUGS (2)
  1. TARCEVA [Suspect]
     Indication: URETERIC CANCER METASTATIC
     Dosage: 150MG DAILY, DAY 1-28 PO
     Route: 048
     Dates: start: 20090225, end: 20090422
  2. VIDAZA [Suspect]
     Indication: URETERIC CANCER METASTATIC
     Dosage: 170 MG DAYS 1, 2, 15, 16 IV
     Route: 042
     Dates: start: 20090225, end: 20090409

REACTIONS (1)
  - MALIGNANT NEOPLASM PROGRESSION [None]
